FAERS Safety Report 14477994 (Version 2)
Quarter: 2018Q3

REPORT INFORMATION
  Report Type: Report from Study
  Country: None (occurrence: RO)
  Receive Date: 20180201
  Receipt Date: 20180702
  Transmission Date: 20181010
  Serious: Yes (Other)
  Sender: FDA-Public Use
  Company Number: RO-ABBVIE-18K-135-2239384-00

PATIENT
  Age: 68 Year
  Sex: Female

DRUGS (2)
  1. EBIXA [Concomitant]
     Active Substance: MEMANTINE HYDROCHLORIDE
     Indication: PRODUCT USED FOR UNKNOWN INDICATION
     Route: 048
     Dates: start: 20171115
  2. DUODOPA [Suspect]
     Active Substance: CARBIDOPA\LEVODOPA
     Indication: PARKINSON^S DISEASE
     Dosage: MD=4.00, CD=4.50, ED=2.20, NRED=0; MDN=0.00?CDN=3.30, EDN=3.30, NREDN=0
     Route: 050
     Dates: start: 20140312

REACTIONS (6)
  - Wound complication [Not Recovered/Not Resolved]
  - Furuncle [Not Recovered/Not Resolved]
  - Purulent discharge [Not Recovered/Not Resolved]
  - Thrombosis [Not Recovered/Not Resolved]
  - Inflammatory pseudotumour [Not Recovered/Not Resolved]
  - Mass [Not Recovered/Not Resolved]

NARRATIVE: CASE EVENT DATE: 20180127
